FAERS Safety Report 8112616-X (Version None)
Quarter: 2012Q1

REPORT INFORMATION
  Report Type: 
  Country: None (occurrence: None)
  Receive Date: 20120203
  Receipt Date: 20120124
  Transmission Date: 20120608
  Serious: Yes (Hospitalization)
  Sender: FDA-Public Use
  Company Number: DE-ELI_LILLY_AND_COMPANY-DE201108003861

PATIENT
  Sex: Male
  Weight: 73 kg

DRUGS (19)
  1. ASPIRIN [Concomitant]
     Indication: HYPERTENSION
     Dosage: UNK
     Dates: start: 20110413
  2. AMPICILLIN AND SULBACTAM [Concomitant]
     Indication: C-REACTIVE PROTEIN INCREASED
     Dosage: UNK
     Dates: start: 20110811
  3. PANTOPRAZOLE [Concomitant]
     Indication: PROPHYLAXIS
     Dosage: UNK
     Dates: start: 20110412
  4. CISPLATIN [Suspect]
     Indication: NON-SMALL CELL LUNG CANCER STAGE IV
     Dosage: 100 MG, 21 DAYS/CYCLE
     Route: 042
  5. GLIMEPIRID [Concomitant]
     Indication: DIABETES MELLITUS
     Dosage: UNK
  6. CELECOXIB [Concomitant]
     Indication: BACK PAIN
     Dosage: UNK
     Dates: start: 20110606
  7. VALORON [Concomitant]
     Indication: BACK PAIN
     Dosage: UNK
     Dates: start: 20110606
  8. METFORMIN HCL [Concomitant]
     Indication: DIABETES MELLITUS
     Dosage: UNK
     Dates: start: 20110412
  9. NEBIVOLOL [Concomitant]
     Indication: HYPERTENSION
     Dosage: UNK
  10. MORPHINSULFAT AMINO [Concomitant]
     Indication: BACK PAIN
     Dosage: UNK
     Dates: start: 20110621
  11. ACETAMINOPHEN [Concomitant]
     Indication: BACK PAIN
     Dosage: UNK
     Dates: start: 20110813
  12. METAMIZOL NATRIUM [Concomitant]
     Indication: BACK PAIN
     Dosage: UNK
     Dates: start: 20110812
  13. NECITUMUMAB (11F8) (LY3012211) [Suspect]
     Indication: NON-SMALL CELL LUNG CANCER STAGE IV
     Dosage: 800 MG, 21 DAYS/CYCLE
     Route: 042
     Dates: start: 20110322
  14. GEMCITABINE HYDROCHLORIDE [Suspect]
     Indication: NON-SMALL CELL LUNG CANCER STAGE IV
     Dosage: 1740 MG, 21 DAYS/CYCLE
     Route: 042
     Dates: start: 20110322
  15. FUROSEMIDE [Concomitant]
     Indication: HYPERTENSION
     Dosage: UNK
  16. AMLODIPINE BESYLATE [Concomitant]
     Indication: HYPERTENSION
     Dosage: UNK
  17. DEXPANTHENOL [Concomitant]
     Indication: DRY SKIN
     Dosage: UNK
     Dates: start: 20110811
  18. FRAGMIN [Concomitant]
     Indication: THROMBOSIS PROPHYLAXIS
     Dosage: UNK
     Dates: start: 20110606
  19. PREGABALIN [Concomitant]
     Indication: NEUROPATHY PERIPHERAL
     Dosage: UNK
     Dates: start: 20110720

REACTIONS (1)
  - THROMBOSIS [None]
